FAERS Safety Report 6374013-7 (Version None)
Quarter: 2009Q3

REPORT INFORMATION
  Report Type: 
  Country: None (occurrence: None)
  Receive Date: 20090924
  Receipt Date: 20090921
  Transmission Date: 20100115
  Serious: Yes (Death)
  Sender: FDA-Public Use
  Company Number: US-BAYER-200933498NA

PATIENT
  Sex: Female

DRUGS (2)
  1. YAZ [Suspect]
     Indication: CONTRACEPTION
     Dosage: YAZ AND/OR YASMIN
     Route: 064
  2. YASMIN [Suspect]
     Indication: CONTRACEPTION
     Route: 064

REACTIONS (1)
  - STILLBIRTH [None]
